FAERS Safety Report 14588846 (Version 3)
Quarter: 2018Q1

REPORT INFORMATION
  Report Type: Report from Study
  Country: JP (occurrence: JP)
  Receive Date: 20180301
  Receipt Date: 20180316
  Transmission Date: 20180509
  Serious: Yes (Death, Hospitalization, Other)
  Sender: FDA-Public Use
  Company Number: JP-B.I. PHARMACEUTICALS,INC./RIDGEFIELD-2018-BI-007539

PATIENT
  Age: 72 Year
  Sex: Male
  Weight: 58 kg

DRUGS (23)
  1. BROTIZOLAM [Concomitant]
     Active Substance: BROTIZOLAM
     Indication: INSOMNIA
     Route: 048
  2. PRECEDEX [Concomitant]
     Active Substance: DEXMEDETOMIDINE HYDROCHLORIDE
     Indication: SEDATION
     Dosage: DAILY DOSE: 7 ML/H
     Route: 042
     Dates: start: 20180213
  3. BIBF 1120 [Suspect]
     Active Substance: NINTEDANIB
     Indication: SYSTEMIC SCLERODERMA
     Route: 048
     Dates: start: 20170706
  4. BIBF 1120 [Suspect]
     Active Substance: NINTEDANIB
     Indication: INTERSTITIAL LUNG DISEASE
  5. LOPERAMIDE HYDROCHLORIDE. [Concomitant]
     Active Substance: LOPERAMIDE HYDROCHLORIDE
     Indication: DIARRHOEA
     Route: 048
     Dates: start: 20171002
  6. ISCOTIN [Concomitant]
     Active Substance: ISONIAZID
     Indication: ANTIBIOTIC PROPHYLAXIS
     Route: 042
     Dates: start: 20180210
  7. SOLU-MEDROL [Concomitant]
     Active Substance: METHYLPREDNISOLONE SODIUM SUCCINATE
     Indication: INTERSTITIAL LUNG DISEASE
     Route: 042
     Dates: start: 20180210
  8. E KEPPRA [Concomitant]
     Active Substance: LEVETIRACETAM
     Indication: PROPHYLAXIS
     Route: 042
     Dates: start: 20180214
  9. ZITHROMAX [Concomitant]
     Active Substance: AZITHROMYCIN DIHYDRATE
     Indication: INTERSTITIAL LUNG DISEASE
     Route: 042
     Dates: start: 20180210
  10. DOBUTAMINE HUDROCHLORIDE [Concomitant]
     Indication: DRUG THERAPY
     Dosage: DAILY DOSE: 2 ML/H
     Route: 042
     Dates: start: 20180213
  11. FAMOTIDINE. [Concomitant]
     Active Substance: FAMOTIDINE
     Indication: GASTRIC ULCER
  12. CEFTRIAXONE SODIUM. [Concomitant]
     Active Substance: CEFTRIAXONE SODIUM
     Indication: INTERSTITIAL LUNG DISEASE
     Route: 042
     Dates: start: 20180210
  13. REBAMIPIDE [Concomitant]
     Active Substance: REBAMIPIDE
     Indication: PROPHYLAXIS
     Route: 048
     Dates: start: 20170516
  14. TAKEPRON [Concomitant]
     Active Substance: LANSOPRAZOLE
     Indication: PROPHYLAXIS
     Route: 042
     Dates: start: 20180210
  15. E KEPPRA [Concomitant]
     Active Substance: LEVETIRACETAM
     Indication: EPILEPSY
  16. NORADRENALINE [Concomitant]
     Active Substance: NOREPINEPHRINE
     Indication: HYPOTENSION
     Route: 042
     Dates: start: 20180214
  17. PYDOXAL [Concomitant]
     Active Substance: PYRIDOXAL
     Indication: ANTIBIOTIC PROPHYLAXIS
     Route: 042
     Dates: start: 20180210
  18. FUROSEMIDE. [Concomitant]
     Active Substance: FUROSEMIDE
     Indication: POLYURIA
     Route: 042
     Dates: start: 20180210
  19. HUSCODE [Concomitant]
     Active Substance: CHLORPHENIRAMINE MALEAT\DIHYDROCODEINE PHOSPHATE\METHYLEPHEDRINE HYDROCHLORIDE, DL-
     Indication: INTERSTITIAL LUNG DISEASE
     Route: 048
     Dates: start: 20180201
  20. MAGMITT [Concomitant]
     Active Substance: MAGNESIUM OXIDE
     Indication: SYSTEMIC SCLERODERMA
     Route: 048
  21. FELBINAC [Concomitant]
     Active Substance: FELBINAC
     Indication: MUSCULOSKELETAL PAIN
     Route: 062
     Dates: start: 20170615
  22. FAMOTIDINE. [Concomitant]
     Active Substance: FAMOTIDINE
     Indication: PROPHYLAXIS
     Route: 042
     Dates: start: 20180216
  23. CELECOX [Concomitant]
     Active Substance: CELECOXIB
     Indication: SYSTEMIC SCLERODERMA
     Route: 048
     Dates: start: 20170516

REACTIONS (9)
  - Acute lung injury [Fatal]
  - Multiple organ dysfunction syndrome [Unknown]
  - Systemic inflammatory response syndrome [Unknown]
  - Depressed level of consciousness [Unknown]
  - Pneumonia aspiration [Unknown]
  - White blood cell count decreased [Unknown]
  - Neutrophil count decreased [Unknown]
  - Atrial fibrillation [Unknown]
  - Influenza [Recovered/Resolved]

NARRATIVE: CASE EVENT DATE: 20180201
